FAERS Safety Report 17852531 (Version 1)
Quarter: 2020Q2

REPORT INFORMATION
  Report Type: Report from Study
  Country: None (occurrence: CA)
  Receive Date: 20200603
  Receipt Date: 20200603
  Transmission Date: 20200714
  Serious: Yes (Other)
  Sender: FDA-Public Use
  Company Number: CA-ABBVIE-20K-028-3426241-00

PATIENT
  Sex: Male

DRUGS (1)
  1. SKYRIZI [Suspect]
     Active Substance: RISANKIZUMAB-RZAA
     Indication: PSORIASIS
     Route: 058
     Dates: start: 20191106

REACTIONS (5)
  - Therapeutic response unexpected [Unknown]
  - Psoriasis [Not Recovered/Not Resolved]
  - Pigmentation disorder [Recovering/Resolving]
  - Hydrocele [Recovered/Resolved]
  - Hydrocele [Not Recovered/Not Resolved]
